FAERS Safety Report 7734127-3 (Version None)
Quarter: 2011Q3

REPORT INFORMATION
  Report Type: 
  Country: None (occurrence: None)
  Receive Date: 20110907
  Receipt Date: 20110825
  Transmission Date: 20111222
  Serious: Yes (Other)
  Sender: FDA-Public Use
  Company Number: MX-ROCHE-800220

PATIENT

DRUGS (1)
  1. BEVACIZUMAB [Suspect]
     Indication: RETINOPATHY OF PREMATURITY
     Dosage: 0.05C OR 0.03CC
     Route: 031

REACTIONS (5)
  - RETINAL VASCULAR DISORDER [None]
  - CONJUNCTIVAL HAEMORRHAGE [None]
  - VITREOUS HAEMORRHAGE [None]
  - EYE DISORDER [None]
  - RETINAL DETACHMENT [None]
